FAERS Safety Report 4471249-7 (Version None)
Quarter: 2004Q4

REPORT INFORMATION
  Report Type: 
  Country: None (occurrence: None)
  Receive Date: 20041011
  Receipt Date: 20041005
  Transmission Date: 20050328
  Serious: Yes (Hospitalization)
  Sender: FDA-Public Use
  Company Number: ES-MERCK-0410ESP00040

PATIENT
  Age: 77 Year
  Sex: Female
  Weight: 56 kg

DRUGS (6)
  1. CALCIUM (UNSPECIFIED) [Concomitant]
     Route: 065
  2. ESCIN [Concomitant]
     Route: 065
  3. GINKGO BILOBA EXTRACT [Concomitant]
     Route: 065
  4. MELILOT AND RUTIN [Concomitant]
     Route: 065
  5. VIOXX [Suspect]
     Indication: OSTEOARTHRITIS
     Route: 048
     Dates: start: 20000101, end: 20041005
  6. VITAMINS (UNSPECIFIED) [Concomitant]
     Route: 065

REACTIONS (3)
  - BURNS THIRD DEGREE [None]
  - SKIN GRAFT [None]
  - TRANSIENT ISCHAEMIC ATTACK [None]
